FAERS Safety Report 9846796 (Version 1)
Quarter: 2014Q1

REPORT INFORMATION
  Report Type: Report from Study
  Country: BR (occurrence: BR)
  Receive Date: 20140127
  Receipt Date: 20140127
  Transmission Date: 20141002
  Serious: Yes (Hospitalization, Other)
  Sender: FDA-Public Use
  Company Number: PHHY2014BR009422

PATIENT
  Sex: Male
  Weight: 80 kg

DRUGS (2)
  1. SANDOSTATIN LAR [Suspect]
     Indication: ACROMEGALY
     Dosage: UNK UKN, EVERY 30 DAYS
     Dates: end: 2013
  2. ANTIHYPERTENSIVE DRUGS [Concomitant]
     Dosage: UNK UKN, UNK

REACTIONS (1)
  - No adverse event [Unknown]
